FAERS Safety Report 7134909-5 (Version None)
Quarter: 2010Q4

REPORT INFORMATION
  Report Type: 
  Country: None (occurrence: None)
  Receive Date: 20101203
  Receipt Date: 20101125
  Transmission Date: 20110411
  Serious: Yes (Hospitalization, Other)
  Sender: FDA-Public Use
  Company Number: SE-ABBOTT-10P-150-0681473-00

PATIENT
  Sex: Male
  Weight: 97 kg

DRUGS (6)
  1. HUMIRA [Suspect]
     Indication: PSORIATIC ARTHROPATHY
     Dates: start: 20040803, end: 20100501
  2. METHOTREXATE [Concomitant]
     Indication: PSORIATIC ARTHROPATHY
     Dosage: 15 MG/WEEK
  3. ORUDIS [Concomitant]
     Indication: PSORIATIC ARTHROPATHY
     Dosage: 200 MG TO THE NIGHT
  4. ALVEDON [Concomitant]
     Indication: PSORIATIC ARTHROPATHY
     Dosage: 1-2 TABL. WHEN NEEDED
  5. LANSOPRAZOLE [Concomitant]
     Indication: DYSPEPSIA
  6. FOLACIN [Concomitant]
     Indication: PRODUCT USED FOR UNKNOWN INDICATION

REACTIONS (4)
  - ARTHRITIS [None]
  - PANCREAS INFECTION [None]
  - PANCREATIC CYST [None]
  - PANCREATITIS [None]
